FAERS Safety Report 19898259 (Version 1)
Quarter: 2021Q3

REPORT INFORMATION
  Report Type: Spontaneous
  Country: US (occurrence: US)
  Receive Date: 20210929
  Receipt Date: 20210929
  Transmission Date: 20211014
  Serious: No
  Sender: FDA-Public Use
  Company Number: US-JNJFOC-20210938480

PATIENT
  Age: 4 Decade
  Sex: Female

DRUGS (1)
  1. MENS ROGAINE EXTRA STRENGTH [Suspect]
     Active Substance: MINOXIDIL
     Indication: ALOPECIA
     Dosage: 1/2 CAPFUL?1 OR 2 TIMES A DAY; ABOUT EVERY 20 HOURS
     Route: 065
     Dates: start: 2016

REACTIONS (3)
  - Intentional product misuse [Unknown]
  - Hair texture abnormal [Recovered/Resolved]
  - Product use issue [Unknown]

NARRATIVE: CASE EVENT DATE: 2016
